FAERS Safety Report 8318058-6 (Version None)
Quarter: 2012Q2

REPORT INFORMATION
  Report Type: 
  Country: None (occurrence: None)
  Receive Date: 20120427
  Receipt Date: 20120418
  Transmission Date: 20120825
  Serious: Yes (Other)
  Sender: FDA-Public Use
  Company Number: US-ASTRAZENECA-2012SE15370

PATIENT
  Age: 64 Year
  Sex: Female

DRUGS (3)
  1. NEXIUM [Suspect]
     Route: 048
  2. CHEMOTHERAPY [Suspect]
     Route: 065
     Dates: start: 19920101
  3. TOPROL-XL [Suspect]
     Route: 048

REACTIONS (1)
  - LEUKAEMIA [None]
